FAERS Safety Report 25102815 (Version 1)
Quarter: 2025Q1

REPORT INFORMATION
  Report Type: Spontaneous
  Country: US (occurrence: US)
  Receive Date: 20250321
  Receipt Date: 20250321
  Transmission Date: 20250409
  Serious: Yes (Hospitalization, Other)
  Sender: GRAVITI PHARMACEUTICALS PRIVATE LIMITED
  Company Number: US-GRAVITIPHARMA-GRA-2503-US-LIT-0145

PATIENT
  Age: 48 Year
  Sex: Male

DRUGS (1)
  1. BUPROPION [Suspect]
     Active Substance: BUPROPION
     Indication: Product used for unknown indication
     Route: 065

REACTIONS (6)
  - Cardiotoxicity [Recovering/Resolving]
  - Ventricular tachycardia [Recovering/Resolving]
  - Cardiogenic shock [Recovering/Resolving]
  - Ventricular hypokinesia [Recovering/Resolving]
  - Arrhythmic storm [Recovering/Resolving]
  - Overdose [Unknown]
